FAERS Safety Report 4422335-9 (Version None)
Quarter: 2004Q3

REPORT INFORMATION
  Report Type: 
  Country: None (occurrence: None)
  Receive Date: 20040810
  Receipt Date: 20040804
  Transmission Date: 20050211
  Serious: Yes (Hospitalization)
  Sender: FDA-Public Use
  Company Number: FR-GLAXOSMITHKLINE-B0341563A

PATIENT
  Age: 40 Year
  Sex: Male

DRUGS (17)
  1. AUGMENTIN '125' [Suspect]
     Indication: PROPHYLAXIS
     Route: 042
     Dates: start: 20040224, end: 20040224
  2. ZOPHREN [Suspect]
     Indication: POSTOPERATIVE CARE
     Route: 065
  3. FRAXIPARINE [Suspect]
     Indication: POSTOPERATIVE CARE
     Route: 058
  4. OMEPRAZOLE [Suspect]
     Indication: POSTOPERATIVE CARE
     Route: 042
  5. EUPANTOL [Suspect]
     Indication: POSTOPERATIVE CARE
     Route: 048
  6. PERFALGAN [Suspect]
     Indication: POSTOPERATIVE CARE
     Route: 042
  7. TOPALGIC ( FRANCE ) [Suspect]
     Indication: POSTOPERATIVE CARE
     Route: 065
  8. DIPRIVAN [Concomitant]
     Indication: PROPHYLAXIS
     Route: 065
     Dates: start: 20030224, end: 20030224
  9. NIMBEX [Concomitant]
     Indication: PROPHYLAXIS
     Route: 065
     Dates: start: 20040224, end: 20040224
  10. DURAGESIC [Concomitant]
     Indication: POSTOPERATIVE CARE
     Route: 065
  11. LEXOMIL [Concomitant]
     Route: 048
     Dates: start: 20040201
  12. DEBRIDAT [Concomitant]
     Indication: POSTOPERATIVE CARE
     Route: 065
  13. MORPHINE [Concomitant]
     Indication: POSTOPERATIVE CARE
     Route: 065
  14. PRIMPERAN INJ [Concomitant]
     Indication: POSTOPERATIVE CARE
     Route: 065
  15. ALLOCHRYSINE [Concomitant]
     Route: 048
  16. CORTICOIDS [Concomitant]
     Route: 065
  17. ULTIVA [Concomitant]
     Indication: PROPHYLAXIS
     Route: 065
     Dates: start: 20030224, end: 20030224

REACTIONS (4)
  - GAMMA-GLUTAMYLTRANSFERASE INCREASED [None]
  - NAUSEA [None]
  - TRANSAMINASES INCREASED [None]
  - VOMITING [None]
